FAERS Safety Report 6474270-2 (Version None)
Quarter: 2009Q4

REPORT INFORMATION
  Report Type: 
  Country: None (occurrence: None)
  Receive Date: 20091204
  Receipt Date: 20091126
  Transmission Date: 20100525
  Serious: Yes (Hospitalization, Other)
  Sender: FDA-Public Use
  Company Number: PHHY2009IR52262

PATIENT
  Age: 45 Year
  Sex: Male

DRUGS (4)
  1. CYCLOSPORINE [Suspect]
     Indication: RENAL TRANSPLANT
     Dosage: 225 MG/DAY
  2. CYCLOSPORINE [Suspect]
     Dosage: 200 MG/DAY
  3. PREDNISOLONE [Concomitant]
     Indication: RENAL TRANSPLANT
  4. CELLCEPT [Concomitant]
     Indication: RENAL TRANSPLANT

REACTIONS (6)
  - CYTOMEGALOVIRUS INFECTION [None]
  - GAIT DISTURBANCE [None]
  - GUILLAIN-BARRE SYNDROME [None]
  - MALAISE [None]
  - MUSCULAR WEAKNESS [None]
  - PYREXIA [None]
